FAERS Safety Report 13125031 (Version 1)
Quarter: 2017Q1

REPORT INFORMATION
  Report Type: Spontaneous
  Country: US (occurrence: US)
  Receive Date: 20170117
  Receipt Date: 20170117
  Transmission Date: 20170428
  Serious: Yes (Hospitalization)
  Sender: FDA-Public Use
  Company Number: None

PATIENT
  Age: 78 Year
  Sex: Male

DRUGS (19)
  1. IPRATROPIUM [Concomitant]
     Active Substance: IPRATROPIUM
  2. PROCTOZONE [Concomitant]
     Active Substance: HYDROCORTISONE
  3. PREDNISONE. [Concomitant]
     Active Substance: PREDNISONE
  4. GENERLAC [Concomitant]
     Active Substance: LACTULOSE
  5. AMIODARONE [Concomitant]
     Active Substance: AMIODARONE
  6. TRAMADOL. [Concomitant]
     Active Substance: TRAMADOL
  7. CETIRIZINE [Concomitant]
     Active Substance: CETIRIZINE HYDROCHLORIDE
  8. MIRTAZAPINE. [Concomitant]
     Active Substance: MIRTAZAPINE
  9. CARVEDILOL. [Concomitant]
     Active Substance: CARVEDILOL
  10. MIDODRINE [Concomitant]
     Active Substance: MIDODRINE
  11. SPIRIVA [Concomitant]
     Active Substance: TIOTROPIUM BROMIDE MONOHYDRATE
  12. PANTOPRAZOLE [Concomitant]
     Active Substance: PANTOPRAZOLE SODIUM
  13. FERROUS SULF [Concomitant]
  14. ADVAIR HFA [Concomitant]
     Active Substance: FLUTICASONE PROPIONATE\SALMETEROL XINAFOATE
  15. ZYTIGA [Suspect]
     Active Substance: ABIRATERONE ACETATE
     Indication: PROSTATE CANCER
     Route: 048
     Dates: start: 20161212
  16. POLYETH [Concomitant]
  17. LISINOPRIL. [Concomitant]
     Active Substance: LISINOPRIL
  18. PROAIR HFA [Concomitant]
     Active Substance: ALBUTEROL SULFATE
  19. ALLOPURINOL. [Concomitant]
     Active Substance: ALLOPURINOL

REACTIONS (1)
  - Pneumonia [None]

NARRATIVE: CASE EVENT DATE: 2017
